FAERS Safety Report 18792885 (Version 1)
Quarter: 2021Q1

REPORT INFORMATION
  Report Type: Spontaneous
  Country: FR (occurrence: FR)
  Receive Date: 20210127
  Receipt Date: 20210127
  Transmission Date: 20210419
  Serious: Yes (Other)
  Sender: FDA-Public Use
  Company Number: FR-SA-2021SA023511

PATIENT
  Age: 34 Year
  Sex: Female

DRUGS (1)
  1. DUPIXENT [Suspect]
     Active Substance: DUPILUMAB
     Dosage: 600 MG, 1X

REACTIONS (10)
  - Chills [Unknown]
  - Anaphylactic reaction [Unknown]
  - Asthma [Unknown]
  - Injection site swelling [Unknown]
  - Respiratory disorder [Unknown]
  - Skin disorder [Unknown]
  - Erythema [Unknown]
  - Tachycardia [Unknown]
  - Pruritus [Unknown]
  - Injection site oedema [Unknown]
